FAERS Safety Report 18547500 (Version 1)
Quarter: 2020Q4

REPORT INFORMATION
  Report Type: Spontaneous
  Country: US (occurrence: US)
  Receive Date: 20201125
  Receipt Date: 20201125
  Transmission Date: 20210114
  Serious: No
  Sender: FDA-Public Use
  Company Number: US-PFIZER INC-2020464120

PATIENT
  Age: 43 Year
  Sex: Female

DRUGS (1)
  1. XELJANZ [Suspect]
     Active Substance: TOFACITINIB CITRATE
     Indication: RHEUMATOID ARTHRITIS
     Dosage: 5 MG, 2X/DAY
     Dates: start: 20201028

REACTIONS (8)
  - Epistaxis [Unknown]
  - Peripheral swelling [Unknown]
  - Plantar fasciitis [Unknown]
  - Condition aggravated [Unknown]
  - Blister [Unknown]
  - Nasal mucosal discolouration [Unknown]
  - Arthritis [Unknown]
  - Joint swelling [Unknown]
